FAERS Safety Report 5120793-8 (Version None)
Quarter: 2006Q4

REPORT INFORMATION
  Report Type: 
  Country: None (occurrence: None)
  Receive Date: 20061005
  Receipt Date: 20060926
  Transmission Date: 20070319
  Serious: Yes (Hospitalization, Other)
  Sender: FDA-Public Use
  Company Number: US-JNJFOC-20060903224

PATIENT
  Sex: Male
  Weight: 95.26 kg

DRUGS (11)
  1. REMICADE [Suspect]
     Route: 042
  2. REMICADE [Suspect]
     Route: 042
  3. REMICADE [Suspect]
     Route: 042
  4. REMICADE [Suspect]
     Route: 042
  5. REMICADE [Suspect]
     Route: 042
  6. REMICADE [Suspect]
     Indication: CROHN'S DISEASE
     Route: 042
  7. ACIPHEX [Concomitant]
     Indication: GASTROOESOPHAGEAL REFLUX DISEASE
  8. LEXAPRO [Concomitant]
     Indication: DEPRESSION
  9. PREDNISONE TAB [Concomitant]
     Indication: CROHN'S DISEASE
  10. DIAZEPAM [Concomitant]
     Indication: PAIN
  11. PERCOCET [Concomitant]
     Indication: PAIN

REACTIONS (8)
  - ARTHRALGIA [None]
  - BLOOD PRESSURE INCREASED [None]
  - HAEMORRHOIDS [None]
  - INTESTINAL HAEMORRHAGE [None]
  - KNEE OPERATION [None]
  - LUNG DISORDER [None]
  - PAIN IN EXTREMITY [None]
  - POLYP [None]
